FAERS Safety Report 18033020 (Version 8)
Quarter: 2021Q4

REPORT INFORMATION
  Report Type: Spontaneous
  Country: US (occurrence: US)
  Receive Date: 20200716
  Receipt Date: 20211209
  Transmission Date: 20220303
  Serious: Yes (Other)
  Sender: FDA-Public Use
  Company Number: US-SA-2020SA182444

PATIENT
  Age: 71 Year
  Sex: Male
  Weight: 95.25 kg

DRUGS (4)
  1. CAPRELSA [Suspect]
     Active Substance: VANDETANIB
     Indication: Thyroid cancer
     Dosage: 300 MG, QD
     Route: 048
     Dates: start: 20200605
  2. CAPRELSA [Suspect]
     Active Substance: VANDETANIB
     Dosage: UNK
     Route: 048
     Dates: start: 20200605
  3. LISINOPRIL [Concomitant]
     Active Substance: LISINOPRIL
  4. LISINOPRIL [Concomitant]
     Active Substance: LISINOPRIL
     Dosage: 20 MG, QD

REACTIONS (10)
  - Bladder cancer [Unknown]
  - Prostate cancer [Unknown]
  - Nephrolithiasis [Unknown]
  - Diarrhoea [Recovering/Resolving]
  - Medication error [Unknown]
  - Blood pressure increased [Unknown]
  - Electrocardiogram change [Unknown]
  - Acne [Unknown]
  - Blood urine present [Unknown]
  - Product dose omission issue [Unknown]

NARRATIVE: CASE EVENT DATE: 20200713
